FAERS Safety Report 17113992 (Version 1)
Quarter: 2019Q4

REPORT INFORMATION
  Report Type: Spontaneous
  Country: SE (occurrence: SE)
  Receive Date: 20191205
  Receipt Date: 20191205
  Transmission Date: 20200122
  Serious: Yes (Hospitalization)
  Sender: FDA-Public Use
  Company Number: SE-TEVA-2019-SE-1146916

PATIENT
  Sex: Female

DRUGS (3)
  1. THERALEN [Suspect]
     Active Substance: TRIMEPRAZINE
     Dosage: 1 BOTTLE
     Route: 048
     Dates: start: 20180419, end: 20180419
  2. LERGIGAN (PROMETHAZINE HYDROCHLORIDE) [Suspect]
     Active Substance: PROMETHAZINE HYDROCHLORIDE
     Dosage: 525 MG
     Route: 048
     Dates: start: 20180419, end: 20180419
  3. OXAZEPAM. [Suspect]
     Active Substance: OXAZEPAM
     Route: 048
     Dates: start: 20180419, end: 20180419

REACTIONS (9)
  - Electrocardiogram QT prolonged [Unknown]
  - Intentional self-injury [Unknown]
  - Somnolence [Unknown]
  - Sinus tachycardia [Unknown]
  - Tremor [Unknown]
  - Mydriasis [Unknown]
  - Intentional overdose [Unknown]
  - Delirium [Unknown]
  - Akathisia [Unknown]

NARRATIVE: CASE EVENT DATE: 20180419
